FAERS Safety Report 6569213-7 (Version None)
Quarter: 2010Q1

REPORT INFORMATION
  Report Type: 
  Country: None (occurrence: None)
  Receive Date: 20100201
  Receipt Date: 20100201
  Transmission Date: 20100710
  Serious: Yes (Life-Threatening, Disabling)
  Sender: FDA-Public Use
  Company Number: None

PATIENT
  Age: 56 Year
  Sex: Male
  Weight: 113.3993 kg

DRUGS (1)
  1. ST JOSEPH 81 MG CHEWABLE ASPIRIN  81 MG MCNEIL -PPC INC. [Suspect]
     Indication: CARDIAC DISORDER
     Dosage: ONE PILL DAILY PO
     Route: 048
     Dates: start: 20100104, end: 20100112

REACTIONS (4)
  - LIP SWELLING [None]
  - RASH [None]
  - SWELLING FACE [None]
  - URTICARIA [None]
